FAERS Safety Report 6137199-5 (Version None)
Quarter: 2009Q1

REPORT INFORMATION
  Report Type: 
  Country: None (occurrence: None)
  Receive Date: 20090326
  Receipt Date: 20090326
  Transmission Date: 20090719
  Serious: Yes (Disabling)
  Sender: FDA-Public Use
  Company Number: None

PATIENT
  Age: 46 Year
  Sex: Female
  Weight: 83.9154 kg

DRUGS (1)
  1. ALDARA [Suspect]
     Indication: VAGINAL NEOPLASM
     Dosage: 1 PACKET 2X WEEK FOR 12 WEE  VAG
     Route: 067
     Dates: start: 20090109, end: 20090217

REACTIONS (17)
  - ARTHRALGIA [None]
  - ASTHENIA [None]
  - BACK PAIN [None]
  - BONE PAIN [None]
  - DIARRHOEA [None]
  - DIZZINESS [None]
  - FATIGUE [None]
  - GAIT DISTURBANCE [None]
  - GASTROINTESTINAL DISORDER [None]
  - HEADACHE [None]
  - HEART RATE IRREGULAR [None]
  - MYALGIA [None]
  - PAIN IN EXTREMITY [None]
  - PELVIC PAIN [None]
  - SKIN BURNING SENSATION [None]
  - TREMOR [None]
  - VOMITING [None]
